FAERS Safety Report 5795955-7 (Version None)
Quarter: 2008Q3

REPORT INFORMATION
  Report Type: 
  Country: None (occurrence: None)
  Receive Date: 20080701
  Receipt Date: 20080619
  Transmission Date: 20090109
  Serious: Yes (Other)
  Sender: FDA-Public Use
  Company Number: US-JNJFOC-20080605302

PATIENT
  Age: 41 Year
  Sex: Female
  Weight: 49.9 kg

DRUGS (1)
  1. MS TYLENOL SEVERE ALLERGY [Suspect]
     Indication: INSOMNIA
     Dosage: 1-2 CAPLETS AT NIGHT
     Route: 048

REACTIONS (1)
  - DEPRESSION [None]
